FAERS Safety Report 18629756 (Version 1)
Quarter: 2020Q4

REPORT INFORMATION
  Report Type: Spontaneous
  Country: US (occurrence: US)
  Receive Date: 20201217
  Receipt Date: 20201217
  Transmission Date: 20210114
  Serious: No
  Sender: FDA-Public Use
  Company Number: US-TEVA-2020-US-1860570

PATIENT
  Sex: Male

DRUGS (1)
  1. AIRDUO DIGIHALER [Suspect]
     Active Substance: FLUTICASONE PROPIONATE\SALMETEROL XINAFOATE
     Dosage: STRENGTH: 232 MCG / 14 MCG
     Route: 055

REACTIONS (2)
  - Wrong technique in device usage process [Unknown]
  - Drug ineffective [Unknown]
